FAERS Safety Report 9955803 (Version 2)
Quarter: 2014Q1

REPORT INFORMATION
  Report Type: Report from Study
  Country: US (occurrence: US)
  Receive Date: 20140304
  Receipt Date: 20140312
  Transmission Date: 20141002
  Serious: Yes (Death)
  Sender: FDA-Public Use
  Company Number: GXBR2014US000786

PATIENT
  Age: 65 Year
  Sex: Male

DRUGS (2)
  1. ENOXAPARIN SODIUM [Suspect]
     Indication: NEOPLASM MALIGNANT
     Dosage: 60 MG, BID
     Dates: start: 201310
  2. ENOXAPARIN SODIUM [Suspect]
     Dosage: 40 MG, QD
     Route: 058

REACTIONS (1)
  - Death [Fatal]
